FAERS Safety Report 7082049-6 (Version None)
Quarter: 2010Q4

REPORT INFORMATION
  Report Type: 
  Country: None (occurrence: None)
  Receive Date: 20101103
  Receipt Date: 20101025
  Transmission Date: 20110411
  Serious: No
  Sender: FDA-Public Use
  Company Number: US-PFIZER INC-2010136235

PATIENT
  Sex: Female
  Weight: 104 kg

DRUGS (10)
  1. LYRICA [Suspect]
     Indication: PARAESTHESIA
     Dosage: 75 MG, 1X/DAY
     Route: 048
  2. FUROSEMIDE [Concomitant]
     Dosage: 40 MG, 2X/DAY
  3. CRESTOR [Concomitant]
     Dosage: 10 MG, 1X/DAY
     Route: 048
  4. SYNTHROID [Concomitant]
     Dosage: 200 MG, 1X/DAY
  5. CALCIUM WITH VITAMIN D [Concomitant]
     Dosage: 600/400 MG
  6. WARFARIN [Concomitant]
     Dosage: UNK
  7. RANITIDINE [Concomitant]
     Dosage: 50 MG, 2X/DAY
     Route: 048
  8. IMDUR [Concomitant]
     Dosage: UNK
     Route: 048
  9. ACETYLSALICYLIC ACID [Concomitant]
     Dosage: UNK
  10. K-DUR [Concomitant]
     Dosage: 20 MG, 1X/DAY
     Route: 048

REACTIONS (2)
  - DRUG INEFFECTIVE [None]
  - OEDEMA PERIPHERAL [None]
